FAERS Safety Report 12355246 (Version 2)
Quarter: 2016Q2

REPORT INFORMATION
  Report Type: Spontaneous
  Country: US (occurrence: US)
  Receive Date: 20160511
  Receipt Date: 20160520
  Transmission Date: 20160815
  Serious: No
  Sender: FDA-Public Use
  Company Number: US-ACTAVIS-2016-04542

PATIENT
  Sex: Female
  Weight: 56 kg

DRUGS (8)
  1. CELECOXIB (WATSON LABORATORIES) [Suspect]
     Active Substance: CELECOXIB
     Indication: MUSCLE RELAXANT THERAPY
     Dosage: 100 MG, TID
     Route: 048
     Dates: start: 1998, end: 2002
  2. CELECOXIB (WATSON LABORATORIES) [Suspect]
     Active Substance: CELECOXIB
     Indication: OSTEOPOROSIS
  3. CELECOXIB (WATSON LABORATORIES) [Suspect]
     Active Substance: CELECOXIB
     Indication: TENDONITIS
  4. CYCLOBENZAPRINE HYDROCHLORIDE (ACTAVIS LABORATORIES FL) [Suspect]
     Active Substance: CYCLOBENZAPRINE HYDROCHLORIDE
     Indication: MUSCLE RELAXANT THERAPY
     Dosage: 30 MG, THREE TIMES DAILY
     Route: 048
     Dates: end: 2002
  5. CYCLOBENZAPRINE HYDROCHLORIDE (ACTAVIS LABORATORIES FL) [Suspect]
     Active Substance: CYCLOBENZAPRINE HYDROCHLORIDE
     Indication: OSTEOPOROSIS
  6. CELECOXIB (WATSON LABORATORIES) [Suspect]
     Active Substance: CELECOXIB
     Indication: BURSITIS
  7. CYCLOBENZAPRINE HYDROCHLORIDE (ACTAVIS LABORATORIES FL) [Suspect]
     Active Substance: CYCLOBENZAPRINE HYDROCHLORIDE
     Indication: ARTHRITIS
     Dosage: 5 MG, THREE TIMES DAILY
     Route: 048
     Dates: start: 1998
  8. CELECOXIB (WATSON LABORATORIES) [Suspect]
     Active Substance: CELECOXIB
     Indication: ARTHRITIS

REACTIONS (1)
  - Drug ineffective [Unknown]
